FAERS Safety Report 20219270 (Version 1)
Quarter: 2021Q4

REPORT INFORMATION
  Report Type: Spontaneous
  Country: CA (occurrence: CA)
  Receive Date: 20211222
  Receipt Date: 20211222
  Transmission Date: 20220303
  Serious: Yes (Life-Threatening)
  Sender: FDA-Public Use
  Company Number: CA-TEVA-2021-CA-1990192

PATIENT
  Age: 23 Year
  Sex: Female

DRUGS (2)
  1. CAPECITABINE [Suspect]
     Active Substance: CAPECITABINE
     Indication: Metastases to central nervous system
     Route: 048
  2. TEMOZOLOMIDE [Suspect]
     Active Substance: TEMOZOLOMIDE
     Indication: Metastases to central nervous system
     Route: 065

REACTIONS (4)
  - Drug ineffective [Unknown]
  - Off label use [Unknown]
  - Off label use [Unknown]
  - No adverse event [Unknown]
